FAERS Safety Report 20814105 (Version 1)
Quarter: 2022Q2

REPORT INFORMATION
  Report Type: Spontaneous
  Country: US (occurrence: US)
  Receive Date: 20220511
  Receipt Date: 20220511
  Transmission Date: 20220721
  Serious: Yes (Hospitalization)
  Sender: FDA-Public Use
  Company Number: US-SANOFI-01092701

PATIENT
  Sex: Male

DRUGS (2)
  1. LANTUS [Suspect]
     Active Substance: INSULIN GLARGINE
  2. APIDRA SOLOSTAR [Suspect]
     Active Substance: INSULIN GLULISINE

REACTIONS (2)
  - Illness [Unknown]
  - Blood glucose decreased [Unknown]
